FAERS Safety Report 20681186 (Version 1)
Quarter: 2022Q2

REPORT INFORMATION
  Report Type: Spontaneous
  Country: US (occurrence: US)
  Receive Date: 20220406
  Receipt Date: 20220406
  Transmission Date: 20220721
  Serious: No
  Sender: FDA-Public Use
  Company Number: US-SA-SAC20220401000562

PATIENT
  Age: 17 Year
  Sex: Female

DRUGS (1)
  1. DUPIXENT [Suspect]
     Active Substance: DUPILUMAB
     Indication: Dermatitis atopic
     Dosage: 300\2 MG/DL, QOW
     Route: 058
     Dates: start: 20211208

REACTIONS (4)
  - Asthma [Unknown]
  - Dermatitis atopic [Unknown]
  - Impaired quality of life [Unknown]
  - Product use issue [Unknown]
